FAERS Safety Report 4435137-4 (Version None)
Quarter: 2004Q3

REPORT INFORMATION
  Report Type: 
  Country: None (occurrence: None)
  Receive Date: 20040827
  Receipt Date: 20020129
  Transmission Date: 20050211
  Serious: Yes (Hospitalization, Disabling)
  Sender: FDA-Public Use
  Company Number: FR-ROCHE-305943

PATIENT
  Age: 3 Year
  Sex: Male
  Weight: 3.5 kg

DRUGS (6)
  1. HIVID [Suspect]
     Indication: HIV INFECTION
     Dosage: TAKEN UNTIL THE 8TH WEEK OF GESTATION.
  2. RETROVIR [Suspect]
     Indication: HIV INFECTION
     Dosage: TAKEN UP UNTIL THE 8TH WEEK OF GESTATION.
  3. RETROVIR [Suspect]
     Dosage: TAKEN FROM THE 32ND WEEK OF GESTATION.
  4. RETROVIR [Suspect]
     Dosage: STRENGTH REPORTED AS 200 MG/20 ML.
     Dates: start: 19980306, end: 19980306
  5. EPIVIR [Suspect]
     Indication: HIV INFECTION
     Dosage: TAKEN FROM THE 32ND WEEK OF GESTATION.
  6. BACTRIM [Concomitant]
     Dosage: DOSE DESCRIBED AS 1 QD (NO UNITS OF MEASURE PROVIDED).

REACTIONS (15)
  - AGGRESSION [None]
  - AGITATION [None]
  - CONGENITAL ANAEMIA [None]
  - CONGENITAL PULMONARY HYPERTENSION [None]
  - CONGENITAL VENTRICULAR SEPTAL DEFECT [None]
  - DRUG EXPOSURE DURING PREGNANCY [None]
  - EXTRASYSTOLES [None]
  - HEPATOSPLENOMEGALY [None]
  - HYPERTONIA [None]
  - HYPOTONIA NEONATAL [None]
  - NEONATAL DISORDER [None]
  - RESPIRATORY DISORDER NEONATAL [None]
  - SOCIAL PROBLEM [None]
  - SPEECH DISORDER DEVELOPMENTAL [None]
  - TACHYPNOEA [None]
